FAERS Safety Report 8818249 (Version 3)
Quarter: 2013Q2

REPORT INFORMATION
  Report Type: Spontaneous
  Country: US (occurrence: US)
  Receive Date: 20121001
  Receipt Date: 20130501
  Transmission Date: 20140414
  Serious: Yes (Life-Threatening, Hospitalization)
  Sender: FDA-Public Use
  Company Number: US-GLAXOSMITHKLINE-A0995322A

PATIENT
  Age: 45 Year
  Sex: Female

DRUGS (2)
  1. FLOLAN [Suspect]
     Indication: PRODUCT USED FOR UNKNOWN INDICATION
     Dosage: 130NGKM CONTINUOUS
     Route: 042
     Dates: start: 19990920
  2. DIURETICS [Concomitant]

REACTIONS (3)
  - Lung transplant [Recovering/Resolving]
  - Procedural haemorrhage [Recovering/Resolving]
  - Fluid retention [Recovering/Resolving]
